FAERS Safety Report 8472555-1 (Version None)
Quarter: 2012Q2

REPORT INFORMATION
  Report Type: 
  Country: None (occurrence: None)
  Receive Date: 20120627
  Receipt Date: 20120307
  Transmission Date: 20120825
  Serious: No
  Sender: FDA-Public Use
  Company Number: US-AMGEN-USASP2012015093

PATIENT
  Sex: Female
  Weight: 67 kg

DRUGS (3)
  1. LASIX [Concomitant]
  2. PROCRIT [Suspect]
     Indication: RENAL FAILURE
  3. PROCRIT [Suspect]
     Indication: ANAEMIA

REACTIONS (2)
  - OEDEMA PERIPHERAL [None]
  - URINARY TRACT INFECTION [None]
